FAERS Safety Report 7632047-6 (Version None)
Quarter: 2011Q3

REPORT INFORMATION
  Report Type: 
  Country: None (occurrence: None)
  Receive Date: 20110725
  Receipt Date: 20110523
  Transmission Date: 20111222
  Serious: No
  Sender: FDA-Public Use
  Company Number: US-BRISTOL-MYERS SQUIBB COMPANY-15768880

PATIENT
  Age: 83 Year
  Sex: Male

DRUGS (7)
  1. LEVOXYL [Concomitant]
  2. COUMADIN [Suspect]
     Indication: ATRIAL FIBRILLATION
     Dosage: 2.5MG ON THU/SAT,3-4 YEARS,INTD 2 DAYS AND RED TO 2.5MG/D, INCRED TO 5MG ON M,F AND 2.5MG OTHER DAYS
  3. ZOCOR [Concomitant]
  4. AMIODARONE HCL [Concomitant]
  5. JANUVIA [Concomitant]
  6. LOTREL [Concomitant]
     Dosage: 1 DF : 5/20MG
  7. METOPROLOL TARTRATE [Concomitant]
     Dates: end: 20110522

REACTIONS (1)
  - INTERNATIONAL NORMALISED RATIO FLUCTUATION [None]
